FAERS Safety Report 7969820-0 (Version None)
Quarter: 2011Q4

REPORT INFORMATION
  Report Type: 
  Country: None (occurrence: None)
  Receive Date: 20111212
  Receipt Date: 20111205
  Transmission Date: 20120403
  Serious: Yes (Death, Other)
  Sender: FDA-Public Use
  Company Number: US-CELGENEUS-163-21880-11120704

PATIENT
  Sex: Male

DRUGS (13)
  1. IMURAN [Concomitant]
     Dosage: 50
     Route: 065
  2. GLIPIZIDE [Concomitant]
     Route: 065
  3. VICODIN [Concomitant]
     Route: 065
  4. PREDNISONE TAB [Concomitant]
     Dosage: 5 MILLIGRAM
     Route: 065
  5. LOSARTAN POTASSIUM [Concomitant]
     Route: 065
  6. APAP TAB [Concomitant]
     Route: 065
  7. RANITIDINE [Concomitant]
     Route: 065
  8. METOPROLOL TARTRATE [Concomitant]
     Route: 065
  9. CYCLOPHOSPHAMIDE [Concomitant]
     Route: 065
  10. K-TAB [Concomitant]
     Route: 065
  11. REVLIMID [Suspect]
     Dosage: 5 MILLIGRAM
     Route: 048
     Dates: start: 20111112, end: 20111123
  12. CALCIUM [Concomitant]
     Route: 065
  13. ONDANSETRON [Concomitant]
     Route: 065

REACTIONS (1)
  - RESPIRATORY TRACT INFECTION [None]
